FAERS Safety Report 22279302 (Version 2)
Quarter: 2023Q2

REPORT INFORMATION
  Report Type: Report from Study
  Country: US (occurrence: US)
  Receive Date: 20230503
  Receipt Date: 20230505
  Transmission Date: 20230721
  Serious: Yes (Congenital Anomaly, Other)
  Sender: FDA-Public Use
  Company Number: US-PFIZER INC-PV202300076112

PATIENT
  Age: 10 Day
  Sex: Female
  Weight: 2.976 kg

DRUGS (3)
  1. RIMEGEPANT [Suspect]
     Active Substance: RIMEGEPANT
     Dosage: UNK
     Route: 064
  2. OXYCODONE [Suspect]
     Active Substance: OXYCODONE
     Indication: Migraine
     Dosage: 3 MG, DAILY (DAY 4: TOTAL DAILY DOSE: 3 MG)
     Route: 064
     Dates: start: 20220314
  3. IMITREX [Suspect]
     Active Substance: SUMATRIPTAN SUCCINATE
     Indication: Migraine
     Dosage: 50 MG, AS NEEDED
     Route: 064
     Dates: start: 2021, end: 20220328

REACTIONS (2)
  - Maternal exposure during pregnancy [Not Recovered/Not Resolved]
  - Developmental hip dysplasia [Not Recovered/Not Resolved]

NARRATIVE: CASE EVENT DATE: 20221216
